FAERS Safety Report 8437495-2 (Version None)
Quarter: 2012Q2

REPORT INFORMATION
  Report Type: 
  Country: None (occurrence: None)
  Receive Date: 20120614
  Receipt Date: 20120426
  Transmission Date: 20120825
  Serious: No
  Sender: FDA-Public Use
  Company Number: US-AMGEN-USASP2012026694

PATIENT
  Age: 70 Year
  Sex: Female

DRUGS (2)
  1. ACIPHEX [Concomitant]
     Dosage: UNK
  2. PROLIA [Suspect]
     Indication: OSTEOPOROSIS POSTMENOPAUSAL
     Dosage: 60 MG, Q6MO
     Dates: start: 20110301

REACTIONS (6)
  - SKIN REACTION [None]
  - PAIN IN EXTREMITY [None]
  - INFLAMMATION [None]
  - ERYTHEMA [None]
  - BURNING SENSATION [None]
  - FEELING COLD [None]
